FAERS Safety Report 6576909-X (Version None)
Quarter: 2010Q1

REPORT INFORMATION
  Report Type: 
  Country: None (occurrence: None)
  Receive Date: 20100210
  Receipt Date: 20100201
  Transmission Date: 20100710
  Serious: Yes (Other)
  Sender: FDA-Public Use
  Company Number: B0631265A

PATIENT
  Sex: Male

DRUGS (5)
  1. ZELITREX [Suspect]
     Indication: ANTIVIRAL PROPHYLAXIS
     Dosage: 500MG TWICE PER DAY
     Route: 048
     Dates: start: 20090801
  2. ORACILLINE [Concomitant]
     Indication: PROPHYLAXIS
     Route: 048
     Dates: start: 20090801
  3. ENDOXAN [Concomitant]
     Route: 042
     Dates: start: 20090801, end: 20090801
  4. FLUDARA [Concomitant]
     Route: 042
     Dates: start: 20090801, end: 20090801
  5. MELPHALAN HYDROCHLORIDE [Concomitant]
     Route: 048
     Dates: start: 20090801, end: 20090801

REACTIONS (4)
  - FACE OEDEMA [None]
  - PRURIGO [None]
  - RENAL FAILURE [None]
  - SWELLING FACE [None]
